FAERS Safety Report 7301586-X (Version None)
Quarter: 2011Q1

REPORT INFORMATION
  Report Type: 
  Country: None (occurrence: None)
  Receive Date: 20110218
  Receipt Date: 20110214
  Transmission Date: 20110831
  Serious: Yes (Hospitalization)
  Sender: FDA-Public Use
  Company Number: US-ABBOTT-11P-163-0705470-00

PATIENT
  Age: 40 Year
  Sex: Female

DRUGS (4)
  1. SUMATRIPTAN [Concomitant]
     Indication: PRODUCT USED FOR UNKNOWN INDICATION
  2. HUMIRA [Suspect]
     Indication: CROHN'S DISEASE
     Dates: start: 20050101, end: 20100420
  3. HUMIRA [Suspect]
     Dates: start: 20100820
  4. BUDALBITAL [Concomitant]
     Indication: PRODUCT USED FOR UNKNOWN INDICATION

REACTIONS (5)
  - ILEOSTOMY [None]
  - COLORECTOSTOMY [None]
  - ANASTOMOTIC LEAK [None]
  - SIGMOIDECTOMY [None]
  - WOUND INFECTION [None]
